FAERS Safety Report 6132725-4 (Version None)
Quarter: 2009Q1

REPORT INFORMATION
  Report Type: 
  Country: None (occurrence: None)
  Receive Date: 20090324
  Receipt Date: 20090324
  Transmission Date: 20090719
  Serious: No
  Sender: FDA-Public Use
  Company Number: None

PATIENT
  Sex: Female
  Weight: 61.6892 kg

DRUGS (3)
  1. PROZAC [Suspect]
     Indication: DEPRESSION
     Dosage: 40 MG ONCE CAP Q DAY PO
     Route: 048
     Dates: start: 20081001
  2. PROZAC [Suspect]
     Indication: DEPRESSION
     Dosage: 40 MG ONCE CAP Q DAY PO
     Route: 048
     Dates: start: 20081101
  3. PROZAC [Suspect]
     Indication: DEPRESSION
     Dosage: 40 MG ONCE CAP Q DAY PO
     Route: 048
     Dates: start: 20081201

REACTIONS (5)
  - CONDITION AGGRAVATED [None]
  - DEPRESSION [None]
  - HYPERSOMNIA [None]
  - IRRITABILITY [None]
  - PRODUCT QUALITY ISSUE [None]
